FAERS Safety Report 6352263-3 (Version None)
Quarter: 2009Q3

REPORT INFORMATION
  Report Type: 
  Country: None (occurrence: None)
  Receive Date: 20090912
  Receipt Date: 20090622
  Transmission Date: 20100115
  Serious: No
  Sender: FDA-Public Use
  Company Number: US-ABBOTT-08P-163-0433516-00

PATIENT
  Sex: Male
  Weight: 76.272 kg

DRUGS (4)
  1. HUMIRA [Suspect]
     Indication: CROHN'S DISEASE
     Route: 058
     Dates: start: 20070601, end: 20070601
  2. HUMIRA [Suspect]
     Route: 058
     Dates: start: 20070601, end: 20070601
  3. HUMIRA [Suspect]
     Route: 058
     Dates: start: 20070601
  4. PREDNISONE [Concomitant]
     Indication: CROHN'S DISEASE
     Route: 048

REACTIONS (4)
  - INCORRECT DOSE ADMINISTERED [None]
  - INJECTION SITE REACTION [None]
  - INJECTION SITE SWELLING [None]
  - LOCALISED INFECTION [None]
